FAERS Safety Report 8413252-8 (Version None)
Quarter: 2012Q2

REPORT INFORMATION
  Report Type: 
  Country: None (occurrence: None)
  Receive Date: 20120605
  Receipt Date: 20120601
  Transmission Date: 20120825
  Serious: Yes (Life-Threatening, Hospitalization, Other)
  Sender: FDA-Public Use
  Company Number: JP-PFIZER INC-2012133035

PATIENT
  Age: 40 Year
  Sex: Male

DRUGS (2)
  1. VARENICLINE TARTRATE [Suspect]
     Indication: NICOTINE DEPENDENCE
     Dosage: 2 MG/DAY
     Route: 048
     Dates: start: 20120416, end: 20120601
  2. LANSOPRAZOLE [Concomitant]
     Dosage: 15 MG/DAY
     Route: 048
     Dates: start: 20120416, end: 20120601

REACTIONS (9)
  - ASPARTATE AMINOTRANSFERASE INCREASED [None]
  - VOMITING [None]
  - DECREASED APPETITE [None]
  - JAUNDICE [None]
  - ABDOMINAL PAIN [None]
  - ALANINE AMINOTRANSFERASE INCREASED [None]
  - GAMMA-GLUTAMYLTRANSFERASE INCREASED [None]
  - HEPATIC FUNCTION ABNORMAL [None]
  - NAUSEA [None]
